FAERS Safety Report 23928219 (Version 1)
Quarter: 2024Q2

REPORT INFORMATION
  Report Type: Spontaneous
  Country: DE (occurrence: DE)
  Receive Date: 20240531
  Receipt Date: 20240531
  Transmission Date: 20240715
  Serious: Yes (Hospitalization)
  Sender: FDA-Public Use
  Company Number: DE-SAMSUNG BIOEPIS-SB-2021-27426

PATIENT
  Age: 62 Year
  Sex: Female
  Weight: 88 kg

DRUGS (8)
  1. CARBOPLATIN [Suspect]
     Active Substance: CARBOPLATIN
     Indication: Breast cancer female
     Dosage: 5 AUC, EVERY 21 DAYS
     Route: 042
     Dates: start: 20211117, end: 20220313
  2. ONTRUZANT [Suspect]
     Active Substance: TRASTUZUMAB-DTTB
     Indication: Breast cancer female
     Dosage: EVERY 21 DAYS
     Route: 042
     Dates: start: 20211117, end: 20211118
  3. ONTRUZANT [Suspect]
     Active Substance: TRASTUZUMAB-DTTB
     Indication: Breast cancer female
     Dosage: EVERY 21 DAYS
     Route: 042
     Dates: end: 20220313
  4. PACLITAXEL [Suspect]
     Active Substance: PACLITAXEL
     Indication: Breast cancer female
     Route: 042
     Dates: start: 20211117, end: 20211118
  5. PERTUZUMAB [Suspect]
     Active Substance: PERTUZUMAB
     Indication: Breast cancer female
     Dosage: EVERY 21 DAYS
     Route: 042
     Dates: start: 20211117, end: 20211118
  6. PERTUZUMAB [Suspect]
     Active Substance: PERTUZUMAB
     Indication: Breast cancer female
     Dosage: EVERY 21 DAYS
     Route: 042
     Dates: end: 20220315
  7. PERJETA [Suspect]
     Active Substance: PERTUZUMAB
     Indication: Breast cancer female
     Dosage: EVERY 21 DAYS
     Route: 042
     Dates: start: 20211117, end: 20220313
  8. PACLITAXEL [Suspect]
     Active Substance: PACLITAXEL
     Indication: Breast cancer female
     Route: 042
     Dates: start: 20211117, end: 20211118

REACTIONS (2)
  - Device related infection [Recovered/Resolved]
  - General physical health deterioration [Not Recovered/Not Resolved]

NARRATIVE: CASE EVENT DATE: 20211118
